FAERS Safety Report 11939970 (Version 1)
Quarter: 2016Q1

REPORT INFORMATION
  Report Type: Spontaneous
  Country: GB (occurrence: GB)
  Receive Date: 20160122
  Receipt Date: 20160122
  Transmission Date: 20160526
  Serious: Yes (Other)
  Sender: FDA-Public Use
  Company Number: GB-ACTAVIS-2016-00296

PATIENT
  Age: 22 Month
  Sex: Male
  Weight: 15 kg

DRUGS (1)
  1. HYDROCORTISONE (UNKNOWN) [Suspect]
     Active Substance: HYDROCORTISONE
     Indication: ECZEMA
     Dosage: 1 DF, QID (APPLY THIN LAYER TO EFFECTED AREA)
     Route: 061
     Dates: start: 20150707

REACTIONS (1)
  - Application site erosion [Not Recovered/Not Resolved]

NARRATIVE: CASE EVENT DATE: 20151108
